FAERS Safety Report 7513532-4 (Version None)
Quarter: 2011Q2

REPORT INFORMATION
  Report Type: 
  Country: None (occurrence: None)
  Receive Date: 20110531
  Receipt Date: 20110518
  Transmission Date: 20111010
  Serious: Yes (Hospitalization, Other)
  Sender: FDA-Public Use
  Company Number: BR-BAYER-2011-044006

PATIENT
  Sex: Female

DRUGS (3)
  1. MIRENA [Suspect]
     Indication: CONTRACEPTION
  2. MIRENA [Suspect]
     Indication: PREMENSTRUAL SYNDROME
  3. MIRENA [Suspect]
     Indication: MENSTRUAL DISORDER
     Dosage: 24 MCG/24HR, CONT
     Route: 015
     Dates: start: 20100501, end: 20110222

REACTIONS (13)
  - HYPOMENORRHOEA [None]
  - ANGER [None]
  - POSTPARTUM DEPRESSION [None]
  - ABASIA [None]
  - POLYMENORRHOEA [None]
  - MOOD ALTERED [None]
  - ANXIETY [None]
  - PROCEDURAL PAIN [None]
  - MENSTRUATION IRREGULAR [None]
  - MENORRHAGIA [None]
  - DEVICE DISLOCATION [None]
  - DYSMENORRHOEA [None]
  - ABNORMAL BEHAVIOUR [None]
